FAERS Safety Report 21007550 (Version 3)
Quarter: 2022Q3

REPORT INFORMATION
  Report Type: Spontaneous
  Country: JP (occurrence: JP)
  Receive Date: 20220626
  Receipt Date: 20220710
  Transmission Date: 20221027
  Serious: Yes (Death, Other)
  Sender: FDA-Public Use
  Company Number: JP-NOVARTISPH-NVSJ2022JP093015

PATIENT
  Age: 71 Year
  Sex: Male

DRUGS (5)
  1. ENTRESTO [Suspect]
     Active Substance: SACUBITRIL\VALSARTAN
     Indication: Cardiac failure
     Dosage: 100 MG
     Route: 048
  2. SAMSCA [Suspect]
     Active Substance: TOLVAPTAN
     Indication: Product used for unknown indication
     Dosage: 7.5 MG
     Route: 048
  3. SAMSCA [Suspect]
     Active Substance: TOLVAPTAN
     Dosage: 15 MG
     Route: 048
  4. AZOSEMIDE [Suspect]
     Active Substance: AZOSEMIDE
     Indication: Product used for unknown indication
     Dosage: 30 MG
     Route: 048
  5. AZOSEMIDE [Suspect]
     Active Substance: AZOSEMIDE
     Dosage: 60 MG
     Route: 048

REACTIONS (3)
  - Cardiac failure [Fatal]
  - Renal failure [Fatal]
  - Low cardiac output syndrome [Unknown]
